FAERS Safety Report 5366663-1 (Version None)
Quarter: 2007Q2

REPORT INFORMATION
  Report Type: 
  Country: None (occurrence: None)
  Receive Date: 20070622
  Receipt Date: 20070611
  Transmission Date: 20071010
  Serious: Yes (Other)
  Sender: FDA-Public Use
  Company Number: DE-AMGEN-UK229758

PATIENT
  Sex: Female

DRUGS (5)
  1. MIMPARA [Suspect]
     Indication: HYPERPARATHYROIDISM SECONDARY
     Route: 048
  2. CELLCEPT [Suspect]
  3. SANDIMMUNE [Suspect]
  4. BASILIXIMAB [Suspect]
  5. METHYLPREDNISOLONE [Concomitant]

REACTIONS (1)
  - LYMPHOMA [None]
